FAERS Safety Report 9817573 (Version 1)
Quarter: 2013Q4

REPORT INFORMATION
  Report Type: Spontaneous
  Country: US (occurrence: None)
  Receive Date: 20131223
  Receipt Date: 20131223
  Transmission Date: 20140711
  Serious: No
  Sender: FDA-Public Use
  Company Number: 219279

PATIENT
  Sex: Female

DRUGS (1)
  1. PICATO (0.015 %, GEL) [Suspect]
     Indication: PRECANCEROUS CELLS PRESENT
     Dosage: (ONCE), DERMAL
     Dates: start: 20130928

REACTIONS (1)
  - Application site burn [None]
